FAERS Safety Report 17051264 (Version 1)
Quarter: 2019Q4

REPORT INFORMATION
  Report Type: Spontaneous
  Country: US (occurrence: US)
  Receive Date: 20191120
  Receipt Date: 20191120
  Transmission Date: 20200122
  Serious: Yes (Hospitalization, Other)
  Sender: FDA-Public Use
  Company Number: US-HIKMA PHARMACEUTICALS USA INC.-US-H14001-19-49859

PATIENT
  Age: 68 Year
  Sex: Male

DRUGS (1)
  1. HEPARIN [Suspect]
     Active Substance: HEPARIN SODIUM
     Indication: PRODUCT USED FOR UNKNOWN INDICATION
     Route: 041

REACTIONS (7)
  - Haemorrhage [Unknown]
  - Blister [Unknown]
  - Platelet count decreased [Unknown]
  - Skin necrosis [Unknown]
  - Purpura [Unknown]
  - Infusion site extravasation [Unknown]
  - Extravasation [Unknown]
